FAERS Safety Report 6410800-4 (Version None)
Quarter: 2009Q4

REPORT INFORMATION
  Report Type: 
  Country: None (occurrence: None)
  Receive Date: 20091022
  Receipt Date: 20090915
  Transmission Date: 20100525
  Serious: Yes (Death, Hospitalization)
  Sender: FDA-Public Use
  Company Number: US-SANOFI-SYNTHELABO-F01200900757

PATIENT
  Sex: Male

DRUGS (6)
  1. HYDROCODONE BITARTRATE [Concomitant]
     Dosage: UNK
  2. ACETAMINOPHEN [Concomitant]
     Dosage: UNK
  3. COLACE [Concomitant]
     Dosage: AS DIRECTED
  4. BEVACIZUMAB [Suspect]
     Dosage: 5 MG/KG
     Route: 042
     Dates: start: 20090612, end: 20090612
  5. CAPECITABINE [Suspect]
     Dosage: UNK
     Route: 048
     Dates: start: 20090612, end: 20090612
  6. OXALIPLATIN [Suspect]
     Indication: RECTAL CANCER
     Dosage: 85 MG/M2
     Route: 042
     Dates: start: 20090417, end: 20090612

REACTIONS (5)
  - CARDIAC ARREST [None]
  - DEHYDRATION [None]
  - RECTAL CANCER STAGE IV [None]
  - SEPTIC SHOCK [None]
  - TACHYCARDIA [None]
